FAERS Safety Report 7980456-8 (Version None)
Quarter: 2011Q4

REPORT INFORMATION
  Report Type: 
  Country: None (occurrence: None)
  Receive Date: 20111214
  Receipt Date: 20111209
  Transmission Date: 20120403
  Serious: Yes (Hospitalization)
  Sender: FDA-Public Use
  Company Number: US-GLAXOSMITHKLINE-A0946363A

PATIENT
  Age: 77 Year
  Sex: Male

DRUGS (14)
  1. LEXAPRO [Concomitant]
  2. LISINOPRIL [Concomitant]
  3. COUMADIN [Concomitant]
  4. LASIX [Suspect]
     Indication: HYPERTENSION
     Dosage: 80MG PER DAY
     Route: 048
     Dates: end: 20111022
  5. LIPITOR [Concomitant]
  6. ASPIRIN [Concomitant]
  7. LANTUS [Concomitant]
  8. DIGOXIN [Suspect]
     Indication: CARDIAC FAILURE CONGESTIVE
     Route: 048
  9. COREG [Suspect]
     Indication: HYPERTENSION
     Dosage: 25MG PER DAY
     Route: 048
  10. BLINDED STUDY MEDICATION [Suspect]
     Indication: TYPE 2 DIABETES MELLITUS
     Route: 048
     Dates: start: 20101021, end: 20110829
  11. ARICEPT [Concomitant]
  12. ATIVAN [Concomitant]
  13. BENADRYL [Concomitant]
  14. NOVOLOG [Concomitant]

REACTIONS (3)
  - ANKLE FRACTURE [None]
  - BALANCE DISORDER [None]
  - FALL [None]
